FAERS Safety Report 7365950-5 (Version None)
Quarter: 2011Q1

REPORT INFORMATION
  Report Type: 
  Country: None (occurrence: None)
  Receive Date: 20110322
  Receipt Date: 20110308
  Transmission Date: 20110831
  Serious: Yes (Other)
  Sender: FDA-Public Use
  Company Number: NL-MYLANLABS-2011S1004592

PATIENT
  Age: 43 Year
  Sex: Male
  Weight: 110 kg

DRUGS (2)
  1. SIMVASTATIN [Suspect]
     Indication: BLOOD CHOLESTEROL INCREASED
     Dosage: 40
     Route: 048
     Dates: start: 20100101, end: 20110210
  2. ZYPREXA [Concomitant]
     Indication: PRODUCT USED FOR UNKNOWN INDICATION
     Dosage: 20MG
     Route: 048
     Dates: start: 20060101

REACTIONS (3)
  - ANXIETY [None]
  - PARANOIA [None]
  - URINARY INCONTINENCE [None]
